FAERS Safety Report 8207774-2 (Version None)
Quarter: 2012Q1

REPORT INFORMATION
  Report Type: 
  Country: None (occurrence: None)
  Receive Date: 20120313
  Receipt Date: 20120313
  Transmission Date: 20120608
  Serious: Yes (Hospitalization)
  Sender: FDA-Public Use
  Company Number: None

PATIENT
  Age: 58 Year
  Sex: Male
  Weight: 82.7 kg

DRUGS (1)
  1. SIMVASTATIN [Suspect]
     Indication: RHABDOMYOLYSIS
     Dosage: 40 MG AT BEDTIME PO
     Route: 048
     Dates: start: 20111001, end: 20120125

REACTIONS (1)
  - RHABDOMYOLYSIS [None]
